FAERS Safety Report 22236445 (Version 1)
Quarter: 2023Q2

REPORT INFORMATION
  Report Type: Other
  Country: US (occurrence: None)
  Receive Date: 20230420
  Receipt Date: 20230420
  Transmission Date: 20230721
  Serious: No
  Sender: FDA-Public Use
  Company Number: US-ROCHE-3074861

PATIENT
  Age: 46 Year
  Sex: Male

DRUGS (3)
  1. BEVACIZUMAB [Suspect]
     Active Substance: BEVACIZUMAB
     Indication: Anterior segment neovascularisation
     Route: 050
  2. GABAPENTIN [Concomitant]
     Active Substance: GABAPENTIN
  3. VARENICLINE [Concomitant]
     Active Substance: VARENICLINE

REACTIONS (3)
  - Off label use [Unknown]
  - Off label use [Unknown]
  - No adverse event [Unknown]
